FAERS Safety Report 8220480-3 (Version None)
Quarter: 2012Q1

REPORT INFORMATION
  Report Type: 
  Country: None (occurrence: None)
  Receive Date: 20120320
  Receipt Date: 20120309
  Transmission Date: 20120608
  Serious: Yes (Other)
  Sender: FDA-Public Use
  Company Number: CA-JNJFOC-20120306569

PATIENT
  Sex: Female
  Weight: 108 kg

DRUGS (5)
  1. REMICADE [Suspect]
     Indication: CROHN'S DISEASE
     Route: 042
     Dates: start: 20090921
  2. BIRTH CONTROL PILL [Concomitant]
     Route: 065
  3. ZOLOFT [Concomitant]
     Route: 065
  4. PREVACID [Concomitant]
     Route: 065
  5. AZATHIOPRINE [Concomitant]
     Route: 065

REACTIONS (1)
  - FLANK PAIN [None]
